FAERS Safety Report 8299479-7 (Version None)
Quarter: 2012Q2

REPORT INFORMATION
  Report Type: 
  Country: None (occurrence: None)
  Receive Date: 20120419
  Receipt Date: 20120411
  Transmission Date: 20120825
  Serious: No
  Sender: FDA-Public Use
  Company Number: US-B.I. PHARMACEUTICALS,INC./RIDGEFIELD-2012-BP-06846BP

PATIENT
  Sex: Male

DRUGS (13)
  1. ALLOPURINOL [Concomitant]
     Indication: GOUT
     Dosage: 100 MG
     Route: 048
     Dates: start: 20120301
  2. PRAVASTATIN [Concomitant]
     Indication: BLOOD CHOLESTEROL INCREASED
     Dosage: 40 MG
     Route: 048
  3. SPIRIVA [Suspect]
     Indication: DYSPNOEA
     Dosage: 18 MCG
     Route: 055
     Dates: start: 20120328
  4. SIMVASTATIN [Concomitant]
     Indication: BLOOD CHOLESTEROL INCREASED
     Dosage: 40 MG
     Route: 048
     Dates: start: 20020101
  5. ASPIRIN [Concomitant]
     Indication: PROPHYLAXIS
     Dosage: 81 MG
     Route: 048
     Dates: start: 20020101
  6. DOXAZOSIN MESYLATE [Concomitant]
     Indication: PROSTATIC DISORDER
     Dosage: 4 MG
     Route: 048
     Dates: start: 20020101
  7. GLIMEPIRIDE [Concomitant]
     Indication: DIABETES MELLITUS
     Dosage: 2 MG
     Route: 048
     Dates: start: 20080101
  8. OMEPRAZOLE [Concomitant]
     Indication: ABDOMINAL DISCOMFORT
     Dosage: 20 MG
     Route: 048
     Dates: start: 20020101
  9. CARVEDILOL [Suspect]
     Indication: CARDIAC DISORDER
     Dosage: 3.125 MG
     Route: 048
     Dates: start: 20120301
  10. LISINOPRIL [Concomitant]
     Indication: HYPERTENSION
     Dosage: 20 MG
     Route: 048
     Dates: start: 20020101
  11. METOLAZONE [Concomitant]
     Indication: OEDEMA PERIPHERAL
     Dosage: 2.5 MG
     Route: 048
     Dates: start: 20020101
  12. OXYBUTYNIN [Concomitant]
     Indication: PROSTATIC DISORDER
     Dosage: 10 MG
     Route: 048
     Dates: start: 20020101
  13. SOTALOL HCL [Concomitant]
     Indication: CARDIAC DISORDER
     Dosage: 80 MG
     Route: 048
     Dates: start: 20020101

REACTIONS (1)
  - DEAFNESS [None]
